FAERS Safety Report 25092087 (Version 2)
Quarter: 2025Q3

REPORT INFORMATION
  Report Type: Report from Study
  Country: US (occurrence: US)
  Receive Date: 20250319
  Receipt Date: 20250701
  Transmission Date: 20251021
  Serious: Yes (Other)
  Sender: ABBVIE
  Company Number: US-ABBVIE-6096096

PATIENT
  Age: 60 Year
  Sex: Female

DRUGS (2)
  1. RINVOQ [Suspect]
     Active Substance: UPADACITINIB
     Indication: Rheumatoid arthritis
     Route: 048
     Dates: start: 20240412, end: 2025
  2. RINVOQ [Suspect]
     Active Substance: UPADACITINIB
     Indication: Rheumatoid arthritis
     Route: 048
     Dates: start: 2025, end: 2025

REACTIONS (6)
  - Sinus operation [Recovering/Resolving]
  - Myalgia [Recovered/Resolved]
  - Blood cholesterol increased [Recovering/Resolving]
  - Paranasal sinus haemorrhage [Recovering/Resolving]
  - Pain [Unknown]
  - Nodule [Unknown]

NARRATIVE: CASE EVENT DATE: 20250101
